FAERS Safety Report 13933109 (Version 3)
Quarter: 2018Q2

REPORT INFORMATION
  Report Type: Spontaneous
  Country: US (occurrence: US)
  Receive Date: 20170904
  Receipt Date: 20180416
  Transmission Date: 20180711
  Serious: Yes (Death, Other)
  Sender: FDA-Public Use
  Company Number: US-PFIZER INC-2017374543

PATIENT
  Age: 50 Year
  Sex: Male

DRUGS (2)
  1. FENTANYL CITRATE. [Suspect]
     Active Substance: FENTANYL CITRATE
     Dosage: UNK
  2. FENTANYL. [Suspect]
     Active Substance: FENTANYL

REACTIONS (2)
  - Toxicity to various agents [Fatal]
  - Unresponsive to stimuli [Unknown]
